FAERS Safety Report 14413305 (Version 1)
Quarter: 2018Q1

REPORT INFORMATION
  Report Type: Spontaneous
  Country: US (occurrence: US)
  Receive Date: 20180119
  Receipt Date: 20180119
  Transmission Date: 20180509
  Serious: Yes (Hospitalization)
  Sender: FDA-Public Use
  Company Number: None

PATIENT
  Age: 50 Year
  Sex: Male
  Weight: 125.9 kg

DRUGS (16)
  1. LEXAPRO [Concomitant]
     Active Substance: ESCITALOPRAM OXALATE
  2. SOMA [Concomitant]
     Active Substance: CARISOPRODOL
  3. CYMBALTA [Concomitant]
     Active Substance: DULOXETINE HYDROCHLORIDE
  4. PERCOCET [Concomitant]
     Active Substance: ACETAMINOPHEN\OXYCODONE HYDROCHLORIDE
  5. ENABLEX [Concomitant]
     Active Substance: DARIFENACIN HYDROBROMIDE
  6. DLOPHINE [Concomitant]
  7. LYRICA [Concomitant]
     Active Substance: PREGABALIN
  8. PLAVIX [Concomitant]
     Active Substance: CLOPIDOGREL BISULFATE
  9. VALIUM [Concomitant]
     Active Substance: DIAZEPAM
  10. HUMALOG [Suspect]
     Active Substance: INSULIN LISPRO
     Indication: DIABETES MELLITUS
     Dosage: 20UNITS TID WITH MEALS SQ?CHRONIC
     Route: 058
  11. BENICAR [Concomitant]
     Active Substance: OLMESARTAN MEDOXOMIL
  12. PREVACID [Concomitant]
     Active Substance: LANSOPRAZOLE
  13. SEROQUEL [Concomitant]
     Active Substance: QUETIAPINE FUMARATE
  14. DESYREL [Concomitant]
     Active Substance: TRAZODONE HYDROCHLORIDE
  15. LANTUS [Suspect]
     Active Substance: INSULIN GLARGINE
     Indication: DIABETES MELLITUS
     Dosage: 50UNITS NIGHTLY SQ ?CHRONIC
     Route: 058
  16. KLORCON [Concomitant]

REACTIONS (2)
  - Hypoglycaemia [None]
  - Agitation [None]

NARRATIVE: CASE EVENT DATE: 20170823
